FAERS Safety Report 17616401 (Version 8)
Quarter: 2020Q4

REPORT INFORMATION
  Report Type: Report from Study
  Country: IT (occurrence: IT)
  Receive Date: 20200402
  Receipt Date: 20201028
  Transmission Date: 20210113
  Serious: Yes (Other)
  Sender: FDA-Public Use
  Company Number: IT-CELGENEUS-ITA-20200308822

PATIENT
  Age: 69 Year
  Sex: Female
  Weight: 69 kg

DRUGS (8)
  1. ALLOPURINOL. [Concomitant]
     Active Substance: ALLOPURINOL
     Indication: ADVERSE EVENT
     Dosage: 300 MG X 1 X 1 DAYS
     Route: 048
     Dates: start: 20200207
  2. FEDRATINIB [Suspect]
     Active Substance: FEDRATINIB
     Indication: MYELOFIBROSIS
     Dosage: 400 MG X 1 X 1 DAYS
     Route: 048
     Dates: start: 20200120, end: 20200317
  3. ALLOPURINOL. [Concomitant]
     Active Substance: ALLOPURINOL
     Indication: PROPHYLAXIS
     Dosage: 300 MG X 3 X 1 WEEKS
     Route: 048
     Dates: start: 2001, end: 20200206
  4. EVEROLIMUS. [Concomitant]
     Active Substance: EVEROLIMUS
     Indication: MYELOFIBROSIS
     Route: 065
     Dates: start: 200904, end: 200907
  5. TICLOPIDINE [Concomitant]
     Active Substance: TICLOPIDINE
     Indication: POLYCYTHAEMIA VERA
     Dosage: 250 MG X 2 X 1 DAYS
     Route: 048
     Dates: start: 200109, end: 2006
  6. FEDRATINIB [Suspect]
     Active Substance: FEDRATINIB
     Dosage: 0 MG X 1 X 1 DAYS
     Route: 048
     Dates: start: 20200318, end: 20200421
  7. FEDRATINIB [Suspect]
     Active Substance: FEDRATINIB
     Dosage: 300 MG X 1 X 1 DAYS
     Route: 048
     Dates: start: 20200422, end: 20200531
  8. CARDIOASPIRIN [Concomitant]
     Active Substance: ASPIRIN
     Indication: HYPERTENSION
     Dosage: 100 MG X 1 X 1 DAYS
     Route: 048
     Dates: start: 2015

REACTIONS (1)
  - Vitamin B1 deficiency [Recovered/Resolved]

NARRATIVE: CASE EVENT DATE: 20200316
